FAERS Safety Report 11221606 (Version 1)
Quarter: 2015Q2

REPORT INFORMATION
  Report Type: Spontaneous
  Country: US (occurrence: None)
  Receive Date: 20150625
  Receipt Date: 20150625
  Transmission Date: 20150821
  Serious: Yes (Disabling)
  Sender: FDA-Public Use
  Company Number: None

PATIENT
  Age: 59 Year
  Sex: Female
  Weight: 100.7 kg

DRUGS (13)
  1. L-GLUTAMINE [Concomitant]
  2. NEULASTA [Suspect]
     Active Substance: PEGFILGRASTIM
     Indication: WHITE BLOOD CELL COUNT DECREASED
     Dosage: 1 24 HR AFT CHEMO
  3. AMLODIPINE BESYLATE. [Concomitant]
     Active Substance: AMLODIPINE BESYLATE
  4. B6 [Concomitant]
     Active Substance: PYRIDOXINE HYDROCHLORIDE
  5. CLARITIN REDITABS [Concomitant]
     Active Substance: LORATADINE
  6. ALEVE [Concomitant]
     Active Substance: NAPROXEN SODIUM
  7. ALIVE MULTI [Concomitant]
  8. TURMERIC [Concomitant]
     Active Substance: TURMERIC
  9. ATIVAN [Concomitant]
     Active Substance: LORAZEPAM
  10. MELATONIN [Concomitant]
     Active Substance: MELATONIN
  11. D3 [Concomitant]
     Active Substance: 25-HYDROXYCHOLECALCIFEROL, 5-TRANS-
  12. BIOTIN [Concomitant]
     Active Substance: BIOTIN
  13. ACL-CARTININE [Concomitant]

REACTIONS (4)
  - Pain in extremity [None]
  - Arthralgia [None]
  - Gait disturbance [None]
  - Movement disorder [None]

NARRATIVE: CASE EVENT DATE: 20150624
